FAERS Safety Report 18550828 (Version 1)
Quarter: 2020Q4

REPORT INFORMATION
  Report Type: Spontaneous
  Country: US (occurrence: US)
  Receive Date: 20201126
  Receipt Date: 20201126
  Transmission Date: 20210114
  Serious: No
  Sender: FDA-Public Use
  Company Number: US-PFIZER INC-2020465752

PATIENT
  Age: 63 Year
  Sex: Male
  Weight: 131.52 kg

DRUGS (1)
  1. SUTENT [Suspect]
     Active Substance: SUNITINIB MALATE
     Dosage: 25 MG (1 CAP), CYCLIC (ONCE DAILY FOR 5 OUT OF 7 DAYS, OFF MONDAY AND FRIDAY, 3 WEEKS ON 1 WEEK OFF)
     Route: 048

REACTIONS (3)
  - Product use issue [Unknown]
  - Off label use [Unknown]
  - Hypertension [Unknown]
